FAERS Safety Report 11132939 (Version 1)
Quarter: 2015Q2

REPORT INFORMATION
  Report Type: Spontaneous
  Country: US (occurrence: None)
  Receive Date: 20150521
  Receipt Date: 20150521
  Transmission Date: 20150821
  Serious: No
  Sender: FDA-Public Use
  Company Number: None

PATIENT
  Age: 28 Year
  Sex: Female
  Weight: 72.58 kg

DRUGS (5)
  1. IBUPROFEN. [Concomitant]
     Active Substance: IBUPROFEN
  2. PREDNISONE 20 MG MEDICATION SOLUTIONS, LLC [Suspect]
     Active Substance: PREDNISONE
     Indication: ACUTE SINUSITIS
     Dosage: 3 PILLS  ONCE DAILY TAKEN BY MOUTH
     Route: 048
  3. AZITHROMYCIN [Concomitant]
     Active Substance: AZITHROMYCIN ANHYDROUS
  4. OMEPRAZOLE. [Concomitant]
     Active Substance: OMEPRAZOLE
  5. DULOXETINE [Concomitant]
     Active Substance: DULOXETINE

REACTIONS (4)
  - Condition aggravated [None]
  - Nausea [None]
  - Abdominal pain [None]
  - Hunger [None]

NARRATIVE: CASE EVENT DATE: 20150519
